FAERS Safety Report 8999266 (Version 1)
Quarter: 2013Q1

REPORT INFORMATION
  Report Type: Spontaneous
  Country: US (occurrence: US)
  Receive Date: 20130103
  Receipt Date: 20130103
  Transmission Date: 20140127
  Serious: No
  Sender: FDA-Public Use
  Company Number: US-PFIZER INC-2012333185

PATIENT
  Age: 53 Year
  Sex: Male
  Weight: 78.91 kg

DRUGS (1)
  1. LATANOPROST [Suspect]
     Indication: INTRAOCULAR PRESSURE DECREASED
     Dosage: 1 GTT, DAILY
     Route: 047
     Dates: start: 201111

REACTIONS (3)
  - Eye irritation [Recovered/Resolved]
  - Asthenopia [Recovered/Resolved]
  - Insomnia [Recovered/Resolved]
